FAERS Safety Report 7576446-X (Version None)
Quarter: 2011Q2

REPORT INFORMATION
  Report Type: 
  Country: None (occurrence: None)
  Receive Date: 20110628
  Receipt Date: 20080811
  Transmission Date: 20111010
  Serious: Yes (Death, Hospitalization, Other)
  Sender: FDA-Public Use
  Company Number: US-BAYER-200830417NA

PATIENT
  Age: 69 Year
  Sex: Male
  Weight: 88 kg

DRUGS (20)
  1. TOPROL-XL [Concomitant]
     Dosage: 25 MG, QD
     Route: 048
     Dates: start: 20031028
  2. HEPARIN [Concomitant]
     Dosage: 56000 UNITS
     Route: 042
     Dates: start: 20031028, end: 20031028
  3. SODIUM BICARBONATE [Concomitant]
     Dosage: 50 MEQ
     Route: 042
     Dates: start: 20031028, end: 20031028
  4. ANCEF [Concomitant]
     Dosage: 1 GRAM EVERY 4 HOURS
     Route: 042
     Dates: start: 20031028
  5. PLAVIX [Concomitant]
     Dosage: 75 MG, QD
     Route: 048
     Dates: start: 20030702
  6. DYNACIRC [Concomitant]
     Dosage: 2.5 MG
     Route: 048
     Dates: start: 19970418
  7. TRASYLOL [Suspect]
     Indication: PRODUCT USED FOR UNKNOWN INDICATION
     Dosage: 200 ML PUMP PRIME
     Route: 042
     Dates: start: 20031028, end: 20031028
  8. CAPTOPRIL [Concomitant]
     Route: 048
  9. LASIX [Concomitant]
     Dosage: 10 MG
     Route: 042
     Dates: start: 20031028, end: 20031028
  10. SOLU-MEDROL [Concomitant]
     Dosage: 1 GRAM
     Route: 042
     Dates: start: 20031028, end: 20031028
  11. TRASYLOL [Suspect]
     Indication: PERICARDIAL REPAIR
     Dosage: 50 ML/HR INFUSION
     Route: 042
     Dates: start: 20031028, end: 20031028
  12. NORVASC [Concomitant]
     Dosage: 5 MG, QD
     Route: 048
     Dates: start: 20031028
  13. VERSED [Concomitant]
     Dosage: 2 MG
     Route: 042
     Dates: start: 20031028, end: 20031028
  14. ALBUMIN (HUMAN) [Concomitant]
     Dosage: 50 GRAMS
     Route: 042
     Dates: start: 20031028, end: 20031028
  15. PHENYLEPHRINE HCL [Concomitant]
     Dosage: 60 MG
     Route: 042
     Dates: start: 20031028, end: 20031028
  16. TRASYLOL [Suspect]
     Indication: AORTIC DISORDER
     Dosage: 500 ML LOADING DOSE
     Route: 042
     Dates: start: 20031028, end: 20031028
  17. IBUPROFEN [Concomitant]
     Dosage: 200-800 MG AS NEEDED
     Route: 048
  18. VASOTEC [Concomitant]
     Dosage: 10 MG, QD
     Route: 048
     Dates: start: 19970117
  19. NITROGLYCERIN [Concomitant]
     Dosage: 3 MCG/MIN
     Route: 042
     Dates: start: 20031028, end: 20031028
  20. DIPRIVAN [Concomitant]
     Dosage: 20 MCG/MIN
     Route: 042
     Dates: start: 20031028, end: 20031028

REACTIONS (12)
  - STRESS [None]
  - INJURY [None]
  - RENAL IMPAIRMENT [None]
  - MULTI-ORGAN FAILURE [None]
  - ANXIETY [None]
  - PAIN [None]
  - DEATH [None]
  - RENAL FAILURE [None]
  - RENAL INJURY [None]
  - UNEVALUABLE EVENT [None]
  - FEAR [None]
  - ANHEDONIA [None]
